FAERS Safety Report 6241412-3 (Version None)
Quarter: 2009Q2

REPORT INFORMATION
  Report Type: 
  Country: None (occurrence: None)
  Receive Date: 20090619
  Receipt Date: 20090619
  Transmission Date: 20091009
  Serious: No
  Sender: FDA-Public Use
  Company Number: None

PATIENT
  Sex: Female

DRUGS (1)
  1. ZICAM RAPIDMELTS [Suspect]
     Indication: NASOPHARYNGITIS
     Dosage: 1 TABLET DISOLVED IN MOUTH EVERY 3 HOURS PO
     Route: 048
     Dates: start: 20080315, end: 20080330

REACTIONS (4)
  - AGEUSIA [None]
  - ANOSMIA [None]
  - MUSCULOSKELETAL PAIN [None]
  - PAROSMIA [None]
